FAERS Safety Report 20735672 (Version 1)
Quarter: 2022Q2

REPORT INFORMATION
  Report Type: Spontaneous
  Country: US (occurrence: US)
  Receive Date: 20220421
  Receipt Date: 20220421
  Transmission Date: 20220721
  Serious: No
  Sender: FDA-Public Use
  Company Number: US-ORGANON-O2204USA001317

PATIENT
  Age: 38 Year
  Sex: Female
  Weight: 91.627 kg

DRUGS (1)
  1. NEXPLANON [Suspect]
     Active Substance: ETONOGESTREL
     Dosage: 1 IMPLANT OF 68MG EVERY 3 YEARS IN LEFT ARM
     Route: 059
     Dates: start: 20210831

REACTIONS (2)
  - Device breakage [Not Recovered/Not Resolved]
  - No adverse event [Unknown]

NARRATIVE: CASE EVENT DATE: 20220414
